FAERS Safety Report 14035437 (Version 3)
Quarter: 2018Q3

REPORT INFORMATION
  Report Type: Report from Study
  Country: JP (occurrence: JP)
  Receive Date: 20171003
  Receipt Date: 20180910
  Transmission Date: 20181010
  Serious: Yes (Death, Hospitalization)
  Sender: FDA-Public Use
  Company Number: PHJP2017JP029918

PATIENT
  Sex: Male

DRUGS (1)
  1. ZYKADIA [Suspect]
     Active Substance: CERITINIB
     Indication: NON-SMALL CELL LUNG CANCER STAGE IV
     Dosage: 750 MG, QD
     Route: 048
     Dates: start: 20170411

REACTIONS (6)
  - Non-small cell lung cancer stage IV [Fatal]
  - Gait inability [Unknown]
  - Metastases to central nervous system [Unknown]
  - Malignant neoplasm progression [Fatal]
  - Muscular weakness [Unknown]
  - Metastases to bone [Unknown]
